FAERS Safety Report 6079819-X (Version None)
Quarter: 2009Q1

REPORT INFORMATION
  Report Type: 
  Country: None (occurrence: None)
  Receive Date: 20090212
  Receipt Date: 20090130
  Transmission Date: 20090719
  Serious: Yes (Hospitalization)
  Sender: FDA-Public Use
  Company Number: DSJ-2008-15141

PATIENT
  Age: 78 Year
  Sex: Male
  Weight: 59 kg

DRUGS (15)
  1. OLMESARTAN MEDOXOMIL [Suspect]
     Indication: ESSENTIAL HYPERTENSION
     Dosage: 10 MG (10 MG, 1 IN 1 D), PER ORAL; 20 MG (20 MG, 1 IN 1 D), PER ORAL
     Route: 048
     Dates: start: 20060615, end: 20070108
  2. OLMESARTAN MEDOXOMIL [Suspect]
     Indication: ESSENTIAL HYPERTENSION
     Dosage: 10 MG (10 MG, 1 IN 1 D), PER ORAL; 20 MG (20 MG, 1 IN 1 D), PER ORAL
     Route: 048
     Dates: start: 20070109, end: 20081112
  3. DOXAZOSIN MESYLATE [Suspect]
     Indication: DRUG USE FOR UNKNOWN INDICATION
     Dosage: 2 MG (2 MG, 1 IN 1 D), PER ORAL; 2 MG (2 MG, 1 IN 1 D), PER ORAL
     Route: 048
     Dates: start: 20080703, end: 20080907
  4. DOXAZOSIN MESYLATE [Suspect]
     Indication: DRUG USE FOR UNKNOWN INDICATION
     Dosage: 2 MG (2 MG, 1 IN 1 D), PER ORAL; 2 MG (2 MG, 1 IN 1 D), PER ORAL
     Route: 048
     Dates: start: 20081002, end: 20081112
  5. CALBLOCK (AZELNIDIPINE) [Concomitant]
  6. LASIX [Concomitant]
  7. FLUITRAN (TRICHLORMETHIAZIDE) (TRICHLORMETHIAZIDE) [Concomitant]
  8. LIPITOR [Concomitant]
  9. GLUCOBAY (ACARBOSE) (ACARBOSE) [Concomitant]
  10. LONGES (LISINOPRIL) (LISINOPRIL) [Concomitant]
  11. ALDACTONE-A (SPIRONOLACTONE) (SPIRONOLACTONE) [Concomitant]
  12. INGREDIENT UNKNOWN [Concomitant]
  13. ASPIRIN [Concomitant]
  14. MEVALOTIN (PRAVASTATIN SODIUM) (PRAVASTATIN SODIUM) [Concomitant]
  15. ALLOPURINOL [Concomitant]

REACTIONS (5)
  - ATRIAL FIBRILLATION [None]
  - HYPOTENSION [None]
  - IRON DEFICIENCY ANAEMIA [None]
  - RENAL IMPAIRMENT [None]
  - TACHYCARDIA [None]
